FAERS Safety Report 5704161-3 (Version None)
Quarter: 2008Q2

REPORT INFORMATION
  Report Type: 
  Country: None (occurrence: None)
  Receive Date: 20080409
  Receipt Date: 20080401
  Transmission Date: 20081010
  Serious: Yes (Disabling)
  Sender: FDA-Public Use
  Company Number: GXKR2008GB03191

PATIENT
  Sex: Male
  Weight: 79 kg

DRUGS (5)
  1. SIMVASTATIN [Suspect]
     Indication: BLOOD CHOLESTEROL INCREASED
     Dosage: 40 MG, QD, ORAL
     Route: 048
     Dates: start: 20070831, end: 20080101
  2. EZETIMIBE(EZETIMIBE) UNKNOWN [Suspect]
     Indication: BLOOD CHOLESTEROL INCREASED
     Dosage: 10 MG, QD, ORAL
     Route: 048
     Dates: start: 20070831
  3. METFORMIN HCL [Concomitant]
  4. NOVOMIX (INSULIN ASPART) [Concomitant]
  5. INSULIN (INSULIN) [Concomitant]

REACTIONS (4)
  - BLOOD GLUCOSE INCREASED [None]
  - MYOSITIS [None]
  - NECK PAIN [None]
  - PAIN IN EXTREMITY [None]
